FAERS Safety Report 7950891-2 (Version None)
Quarter: 2011Q4

REPORT INFORMATION
  Report Type: 
  Country: None (occurrence: None)
  Receive Date: 20111201
  Receipt Date: 20111120
  Transmission Date: 20120403
  Serious: Yes (Hospitalization)
  Sender: FDA-Public Use
  Company Number: CA-JNJFOC-20111109537

PATIENT
  Sex: Male
  Weight: 104 kg

DRUGS (2)
  1. PURINETHOL [Concomitant]
     Route: 048
  2. REMICADE [Suspect]
     Indication: CROHN'S DISEASE
     Route: 042
     Dates: start: 20110919, end: 20110919

REACTIONS (1)
  - HAEMORRHOIDS [None]
